FAERS Safety Report 4633524-2 (Version None)
Quarter: 2005Q2

REPORT INFORMATION
  Report Type: 
  Country: None (occurrence: None)
  Receive Date: 20050331
  Receipt Date: 20041104
  Transmission Date: 20051028
  Serious: Yes (Other)
  Sender: FDA-Public Use
  Company Number: 200415340BCC

PATIENT
  Age: 78 Year
  Sex: Male

DRUGS (2)
  1. ALEVE [Suspect]
     Indication: ARTHRITIS
     Dosage: 440 MG, OM, ORAL
     Route: 048
  2. MULTIVITAMIN [Concomitant]

REACTIONS (3)
  - DYSPHAGIA [None]
  - GASTRIC ULCER [None]
  - STOMACH DISCOMFORT [None]
